FAERS Safety Report 5481723-2 (Version None)
Quarter: 2007Q3

REPORT INFORMATION
  Report Type: 
  Country: None (occurrence: None)
  Receive Date: 20070917
  Receipt Date: 20061205
  Transmission Date: 20080115
  Serious: Yes (Other)
  Sender: FDA-Public Use
  Company Number: S06-USA-05202-01

PATIENT
  Age: 51 Year
  Sex: Female

DRUGS (4)
  1. CELEXA [Suspect]
     Dates: start: 20050101, end: 20060801
  2. CELEXA [Suspect]
     Dates: start: 20060801
  3. HORMONE [Concomitant]
  4. ALCOHOL [Suspect]

REACTIONS (6)
  - ABNORMAL BEHAVIOUR [None]
  - AGGRESSION [None]
  - DRUG INTERACTION [None]
  - HYPERSOMNIA [None]
  - MEMORY IMPAIRMENT [None]
  - MOOD SWINGS [None]
